FAERS Safety Report 10538588 (Version 3)
Quarter: 2014Q4

REPORT INFORMATION
  Report Type: Spontaneous
  Country: US (occurrence: US)
  Receive Date: 20141023
  Receipt Date: 20141204
  Transmission Date: 20150529
  Serious: Yes (Hospitalization, Other)
  Sender: FDA-Public Use
  Company Number: US-PFIZER INC-2014290407

PATIENT
  Age: 66 Year
  Sex: Female
  Weight: 74 kg

DRUGS (17)
  1. CALCIUM [Concomitant]
     Active Substance: CALCIUM
     Dosage: 630 MG, 2X/DAY
     Dates: start: 2014
  2. PREDNISONE. [Concomitant]
     Active Substance: PREDNISONE
     Dosage: 5 MG, 2X/DAY
  3. CITALOPRAM [Concomitant]
     Active Substance: CITALOPRAM HYDROBROMIDE
     Indication: DEPRESSION
     Dosage: 20 MG, 1X/DAY
  4. ZOLPIDEM [Concomitant]
     Active Substance: ZOLPIDEM\ZOLPIDEM TARTRATE
     Dosage: 5 MG, AS NEEDED (TOOK ONE AT BED TIME)
  5. PANTOPRAZOLE [Concomitant]
     Active Substance: PANTOPRAZOLE SODIUM
     Indication: GASTRIC DISORDER
     Dosage: 40 MG, 1X/DAY
     Dates: start: 2013
  6. VITAMIN D [Concomitant]
     Active Substance: CHOLECALCIFEROL
     Dosage: 1000 IU, DAILY
     Dates: start: 2014
  7. LEVOTHYROXINE [Concomitant]
     Active Substance: LEVOTHYROXINE
     Indication: THYROID DISORDER
     Dosage: 50 UG, 1X/DAY
     Dates: start: 2012
  8. ETODOLAC. [Concomitant]
     Active Substance: ETODOLAC
     Dosage: 500 MG, 1X/DAY
     Route: 048
  9. VITAMIN D3 [Concomitant]
     Active Substance: CHOLECALCIFEROL
     Dosage: 1000 IU, 1X/DAY
  10. LYRICA [Suspect]
     Active Substance: PREGABALIN
     Indication: NEUROPATHY PERIPHERAL
     Dosage: 50 MG, 3X/DAY
     Route: 048
     Dates: start: 20140811
  11. LIPITOR [Concomitant]
     Active Substance: ATORVASTATIN CALCIUM
     Indication: BLOOD CHOLESTEROL
     Dosage: 10 MG, 1X/DAY AT BEDTIME
     Dates: start: 1999
  12. DILANTIN [Suspect]
     Active Substance: PHENYTOIN
     Indication: MUSCLE DISORDER
     Dosage: 200 MG, 1X/DAY (100MG, 2 CAPSULES A DAY)
     Dates: start: 1999
  13. DILANTIN [Suspect]
     Active Substance: PHENYTOIN
     Indication: MUSCULAR DYSTROPHY
  14. METFORMIN [Concomitant]
     Active Substance: METFORMIN HYDROCHLORIDE
     Indication: DIABETES MELLITUS
     Dosage: 1000 MG, 2X/DAY
     Dates: start: 1999
  15. PERCOCET [Concomitant]
     Active Substance: ACETAMINOPHEN\OXYCODONE HYDROCHLORIDE
     Indication: CLAVICLE FRACTURE
     Dosage: [OXYCODONE HYDROCHLORIDE 5MG]/[PARACETAMOL 325MG], 2-3 TIMES PER DAY (EVERY 4 HOUR AS NEEDED)
  16. COMPAZINE [Concomitant]
     Active Substance: PROCHLORPERAZINE MALEATE
     Dosage: 10 MG, AS NEEDED
  17. PHENYTOIN EX [Concomitant]
     Dosage: 200 MG, 1X/DAY

REACTIONS (1)
  - Meningitis [Recovered/Resolved]

NARRATIVE: CASE EVENT DATE: 201409
